FAERS Safety Report 17045798 (Version 6)
Quarter: 2020Q3

REPORT INFORMATION
  Report Type: Spontaneous
  Country: BR (occurrence: BR)
  Receive Date: 20191118
  Receipt Date: 20200715
  Transmission Date: 20201102
  Serious: Yes (Other)
  Sender: FDA-Public Use
  Company Number: BR-BEH-2019109426

PATIENT
  Age: 6 Year
  Sex: Female
  Weight: 23.5 kg

DRUGS (3)
  1. PRIVIGEN [Suspect]
     Active Substance: HUMAN IMMUNOGLOBULIN G
     Indication: IMMUNODEFICIENCY COMMON VARIABLE
     Dosage: 650 MILLIGRAM/KILOGRAM, QMT (EVERY 4 WEEKS)
     Route: 042
     Dates: start: 201705, end: 20191107
  2. PRIVIGEN [Suspect]
     Active Substance: HUMAN IMMUNOGLOBULIN G
     Indication: HYPOGAMMAGLOBULINAEMIA
     Dosage: UNK, REGULAR DOSAGE APPROVED IN THE PI
     Route: 042
     Dates: start: 2016, end: 201705
  3. PRIVIGEN [Suspect]
     Active Substance: HUMAN IMMUNOGLOBULIN G
     Dosage: 650 MILLIGRAM/KILOGRAM, QMT
     Route: 042
     Dates: start: 20190902, end: 20190902

REACTIONS (2)
  - Seizure [Recovered/Resolved]
  - Agitation [Unknown]

NARRATIVE: CASE EVENT DATE: 2016
